FAERS Safety Report 25465456 (Version 4)
Quarter: 2025Q3

REPORT INFORMATION
  Report Type: Report from Study
  Country: US (occurrence: US)
  Receive Date: 20250623
  Receipt Date: 20250804
  Transmission Date: 20251020
  Serious: Yes (Hospitalization, Other)
  Sender: ABBVIE
  Company Number: US-ABBVIE-6331531

PATIENT
  Age: 51 Year
  Sex: Female

DRUGS (2)
  1. SKYRIZI [Suspect]
     Active Substance: RISANKIZUMAB-RZAA
     Indication: Colitis ulcerative
     Dosage: DRUG END DATE- 2025
     Route: 058
     Dates: start: 20250404
  2. SKYRIZI [Suspect]
     Active Substance: RISANKIZUMAB-RZAA
     Indication: Crohn^s disease

REACTIONS (8)
  - Haematochezia [Unknown]
  - Intestinal varices [Unknown]
  - Haemoglobin decreased [Unknown]
  - Umbilical hernia [Unknown]
  - Cholangitis sclerosing [Not Recovered/Not Resolved]
  - Fluid retention [Unknown]
  - Infection [Unknown]
  - Colitis [Recovering/Resolving]

NARRATIVE: CASE EVENT DATE: 20250101
